FAERS Safety Report 6408639-9 (Version None)
Quarter: 2009Q4

REPORT INFORMATION
  Report Type: 
  Country: None (occurrence: None)
  Receive Date: 20091021
  Receipt Date: 20091014
  Transmission Date: 20100525
  Serious: Yes (Hospitalization)
  Sender: FDA-Public Use
  Company Number: US-ELI_LILLY_AND_COMPANY-US200909003314

PATIENT
  Sex: Female
  Weight: 70.295 kg

DRUGS (10)
  1. PEMETREXED [Suspect]
     Indication: OVARIAN CANCER
     Dosage: 600 MG/M2, OTHER
     Route: 042
     Dates: start: 20090706
  2. CARBOPLATIN [Suspect]
     Indication: OVARIAN CANCER
     Dosage: 5 D/F, OTHER
     Route: 042
     Dates: start: 20090706
  3. FOLIC ACID [Concomitant]
     Indication: PROPHYLAXIS
     Dates: start: 20090629
  4. VITAMIN B-12 [Concomitant]
     Indication: PROPHYLAXIS
     Dates: start: 20090629
  5. SLOW-MAG [Concomitant]
     Indication: HYPOMAGNESAEMIA
     Dates: start: 20090706
  6. COLACE [Concomitant]
     Indication: CONSTIPATION
     Dates: start: 20090706
  7. FERROUS SULFATE TAB [Concomitant]
     Indication: ANAEMIA
     Dates: start: 20090706
  8. DECADRON [Concomitant]
     Indication: PROPHYLAXIS
     Dates: start: 20090908, end: 20090910
  9. SENNA [Concomitant]
     Indication: CONSTIPATION
     Dates: start: 20090805
  10. LACTULOSE [Concomitant]
     Indication: CONSTIPATION
     Dates: start: 20071101

REACTIONS (1)
  - CHEST PAIN [None]
